FAERS Safety Report 5931979-4 (Version None)
Quarter: 2008Q4

REPORT INFORMATION
  Report Type: 
  Country: None (occurrence: None)
  Receive Date: 20081027
  Receipt Date: 20081021
  Transmission Date: 20090506
  Serious: No
  Sender: FDA-Public Use
  Company Number: US-B.I. PHARMACEUTICALS,INC./RIDGEFIELD-2008-BP-16152BP

PATIENT
  Age: 49 Year
  Sex: Female

DRUGS (5)
  1. MIRAPEX [Suspect]
     Indication: RESTLESS LEGS SYNDROME
     Dosage: .25MG
     Route: 048
     Dates: start: 20081014
  2. CYTOMEL [Concomitant]
     Indication: THYROID DISORDER
     Route: 048
  3. NEXIUM [Concomitant]
     Indication: GASTROOESOPHAGEAL REFLUX DISEASE
     Route: 048
  4. CYMBALTA [Concomitant]
     Indication: FIBROMYALGIA
     Route: 048
  5. LYRICA [Concomitant]
     Indication: PERIPHERAL VASCULAR DISORDER
     Route: 048

REACTIONS (5)
  - DRY THROAT [None]
  - MUSCLE TWITCHING [None]
  - OROPHARYNGEAL PAIN [None]
  - SOMNOLENCE [None]
  - VISION BLURRED [None]
